FAERS Safety Report 25410503 (Version 1)
Quarter: 2025Q2

REPORT INFORMATION
  Report Type: Report from Study
  Country: US (occurrence: US)
  Receive Date: 20250608
  Receipt Date: 20250608
  Transmission Date: 20250717
  Serious: Yes (Other)
  Sender: ABBVIE
  Company Number: US-ABBVIE-6314697

PATIENT
  Age: 48 Year
  Sex: Female

DRUGS (1)
  1. HUMIRA [Suspect]
     Active Substance: ADALIMUMAB
     Indication: Psoriasis
     Route: 058
     Dates: start: 20181127

REACTIONS (5)
  - Pharyngeal operation [Not Recovered/Not Resolved]
  - Osteopenia [Not Recovered/Not Resolved]
  - Osteoporosis [Not Recovered/Not Resolved]
  - Foot fracture [Not Recovered/Not Resolved]
  - Blood calcium abnormal [Unknown]

NARRATIVE: CASE EVENT DATE: 20250101
